FAERS Safety Report 5014529-9 (Version None)
Quarter: 2006Q2

REPORT INFORMATION
  Report Type: 
  Country: None (occurrence: None)
  Receive Date: 20060531
  Receipt Date: 20060527
  Transmission Date: 20061013
  Serious: Yes (Death)
  Sender: FDA-Public Use
  Company Number: JP-AVENTIS-200611634JP

PATIENT
  Sex: Female

DRUGS (4)
  1. TAXOTERE [Suspect]
     Indication: DISEASE PROGRESSION
     Route: 041
  2. FLUOROURACIL [Concomitant]
     Indication: BREAST CANCER RECURRENT
  3. ETOPOSIDE [Concomitant]
     Indication: BREAST CANCER RECURRENT
  4. CISPLATIN [Concomitant]
     Indication: BREAST CANCER RECURRENT

REACTIONS (3)
  - ARRHYTHMIA [None]
  - CARDIAC FAILURE CONGESTIVE [None]
  - SUDDEN DEATH [None]
